FAERS Safety Report 7201619-5 (Version None)
Quarter: 2010Q4

REPORT INFORMATION
  Report Type: 
  Country: None (occurrence: None)
  Receive Date: 20101229
  Receipt Date: 20101216
  Transmission Date: 20110411
  Serious: Yes (Disabling, Other)
  Sender: FDA-Public Use
  Company Number: US-ROCHE-735971

PATIENT
  Sex: Male
  Weight: 65.8 kg

DRUGS (2)
  1. AVASTIN [Suspect]
     Indication: GLIOBLASTOMA MULTIFORME
     Dosage: DOSE REPORTED AS: 9 DOSES/700 MG  FREQUENCY: 15 DAYS
     Route: 042
     Dates: start: 20081223, end: 20100216
  2. IRINOTECAN HCL [Suspect]
     Indication: GLIOBLASTOMA MULTIFORME
     Route: 065

REACTIONS (3)
  - BLINDNESS UNILATERAL [None]
  - NERVE COMPRESSION [None]
  - VISION BLURRED [None]
